APPROVED DRUG PRODUCT: FUROSEMIDE
Active Ingredient: FUROSEMIDE
Strength: 80MG
Dosage Form/Route: TABLET;ORAL
Application: A077293 | Product #003 | TE Code: AB
Applicant: LEADING PHARMA LLC
Approved: Nov 9, 2005 | RLD: No | RS: No | Type: RX